FAERS Safety Report 6576729-6 (Version None)
Quarter: 2010Q1

REPORT INFORMATION
  Report Type: 
  Country: None (occurrence: None)
  Receive Date: 20100210
  Receipt Date: 20100202
  Transmission Date: 20100710
  Serious: Yes (Other)
  Sender: FDA-Public Use
  Company Number: US-ROCHE-683635

PATIENT
  Sex: Male

DRUGS (1)
  1. XELODA [Suspect]
     Indication: COLORECTAL CANCER
     Dosage: FREQUENCY: 03 TABLETS (500 MG) BID; CYCLE 1
     Route: 048
     Dates: start: 20091231, end: 20100120

REACTIONS (1)
  - CONVULSION [None]
